FAERS Safety Report 13886229 (Version 11)
Quarter: 2019Q1

REPORT INFORMATION
  Report Type: Report from Study
  Country: US (occurrence: US)
  Receive Date: 20170821
  Receipt Date: 20190329
  Transmission Date: 20190417
  Serious: Yes (Hospitalization, Other)
  Sender: FDA-Public Use
  Company Number: US-ROCHE-1978525

PATIENT
  Age: 28 Year
  Sex: Female
  Weight: 74 kg

DRUGS (64)
  1. RITUXIMAB. [Suspect]
     Active Substance: RITUXIMAB
     Dosage: INFUSION START DATE: 13:20?INFUSION END DATE :13:50?INFUSION RATE: 250 MG/HOUR
     Route: 042
     Dates: start: 20170411
  2. RITUXIMAB. [Suspect]
     Active Substance: RITUXIMAB
     Dosage: INFUSION START DATE: 12:39?INFUSION END DATE :14:30?INFUSION RATE: 400 MG/HOUR
     Route: 042
     Dates: start: 20170427
  3. PREDNISONE. [Suspect]
     Active Substance: PREDNISONE
     Route: 048
     Dates: start: 20171024
  4. PREDNISONE. [Suspect]
     Active Substance: PREDNISONE
     Route: 048
     Dates: start: 20170531, end: 20170606
  5. PREDNISONE. [Suspect]
     Active Substance: PREDNISONE
     Route: 048
     Dates: start: 20170621, end: 20170627
  6. GABAPENTIN. [Concomitant]
     Active Substance: GABAPENTIN
     Route: 048
  7. ONDANSETRON [Concomitant]
     Active Substance: ONDANSETRON
     Route: 042
     Dates: start: 20170427, end: 20170427
  8. DILAUDID [Concomitant]
     Active Substance: HYDROMORPHONE HYDROCHLORIDE
     Route: 048
  9. RITUXIMAB. [Suspect]
     Active Substance: RITUXIMAB
     Indication: LUPUS NEPHRITIS
     Route: 042
     Dates: start: 20170411, end: 20170411
  10. RITUXIMAB. [Suspect]
     Active Substance: RITUXIMAB
     Dosage: INFUSION START DATE: 11:50?INFUSION END DATE :12:20?INFUSION RATE: 100 MG/HOUR
     Route: 042
     Dates: start: 20170411
  11. CYCLOPHOSPHAMIDE. [Suspect]
     Active Substance: CYCLOPHOSPHAMIDE
     Indication: LUPUS NEPHRITIS
     Route: 042
     Dates: start: 20170411, end: 20170411
  12. CYCLOPHOSPHAMIDE. [Suspect]
     Active Substance: CYCLOPHOSPHAMIDE
     Route: 042
     Dates: start: 20170427, end: 20170427
  13. SOLU-MEDROL [Suspect]
     Active Substance: METHYLPREDNISOLONE SODIUM SUCCINATE
     Indication: LUPUS NEPHRITIS
     Dosage: METHYLPREDNISOLONE SODIUM SUCCINATE LAST DOSE 100 MG PRIOR TO SAE ON 27/APR/2017
     Route: 042
     Dates: start: 20170411, end: 20170411
  14. ALENDRONATE [Suspect]
     Active Substance: ALENDRONATE SODIUM
     Indication: PRODUCT USED FOR UNKNOWN INDICATION
     Route: 065
  15. SPIRONOLACTONE. [Concomitant]
     Active Substance: SPIRONOLACTONE
     Route: 048
  16. PLAQUENIL [Concomitant]
     Active Substance: HYDROXYCHLOROQUINE SULFATE
     Route: 065
  17. RITUXIMAB. [Suspect]
     Active Substance: RITUXIMAB
     Dosage: INFUSION START DATE: 11:54?INFUSION END DATE :12:09?INFUSION RATE: 200 MG/HOUR
     Route: 042
     Dates: start: 20170427
  18. PREDNISONE. [Suspect]
     Active Substance: PREDNISONE
     Indication: LUPUS NEPHRITIS
     Route: 048
     Dates: start: 20170325
  19. PREDNISONE. [Suspect]
     Active Substance: PREDNISONE
     Route: 048
     Dates: start: 20170510, end: 20170516
  20. PREDNISONE. [Suspect]
     Active Substance: PREDNISONE
     Route: 048
     Dates: start: 20170517, end: 20170523
  21. DIPHENHYDRAMINE. [Concomitant]
     Active Substance: DIPHENHYDRAMINE
     Route: 065
     Dates: start: 20170427
  22. AMLODIPINE [Concomitant]
     Active Substance: AMLODIPINE BESYLATE
  23. RITUXIMAB. [Suspect]
     Active Substance: RITUXIMAB
     Route: 042
     Dates: start: 20170427, end: 20170427
  24. RITUXIMAB. [Suspect]
     Active Substance: RITUXIMAB
     Dosage: INFUSION START DATE: 13:50?INFUSION END DATE :14:20?INFUSION RATE: 300MG/HOUR
     Route: 042
     Dates: start: 20170411
  25. RITUXIMAB. [Suspect]
     Active Substance: RITUXIMAB
     Dosage: INFUSION START DATE: 14:50?INFUSION END DATE :15:20?INFUSION RATE: 400 MG/HOUR
     Route: 042
     Dates: start: 20170411
  26. PREDNISONE. [Suspect]
     Active Substance: PREDNISONE
     Route: 048
     Dates: start: 20170428, end: 20170502
  27. PREDNISONE. [Suspect]
     Active Substance: PREDNISONE
     Route: 048
     Dates: start: 20170524, end: 20170530
  28. BUMETANIDE. [Concomitant]
     Active Substance: BUMETANIDE
     Route: 048
  29. POTASSIUM CHLORIDE. [Concomitant]
     Active Substance: POTASSIUM CHLORIDE
     Route: 048
  30. BUMEX [Concomitant]
     Active Substance: BUMETANIDE
     Route: 065
  31. MESNA. [Concomitant]
     Active Substance: MESNA
     Route: 042
  32. RITUXIMAB. [Suspect]
     Active Substance: RITUXIMAB
     Dosage: INFUSION START DATE: 11:20?INFUSION END DATE :11:50?INFUSION RATE: 50 MG/HOUR
     Route: 042
     Dates: start: 20170411
  33. RITUXIMAB. [Suspect]
     Active Substance: RITUXIMAB
     Dosage: INFUSION START DATE: 14:20?INFUSION END DATE :14:50?INFUSION RATE: 350 MG/HOUR
     Route: 042
     Dates: start: 20170411
  34. RITUXIMAB. [Suspect]
     Active Substance: RITUXIMAB
     Dosage: INFUSION START DATE: 11:09?INFUSION END DATE :11:38?INFUSION RATE: 200 MG/HOUR
     Route: 042
     Dates: start: 20170427
  35. RITUXIMAB. [Suspect]
     Active Substance: RITUXIMAB
     Dosage: INFUSION START DATE: 11:39?INFUSION END DATE :11:53?INFUSION RATE: 300 MG/HOUR
     Route: 042
     Dates: start: 20170427
  36. PREDNISONE. [Suspect]
     Active Substance: PREDNISONE
     Route: 048
     Dates: start: 20170503, end: 20170509
  37. PREDNISONE. [Suspect]
     Active Substance: PREDNISONE
     Route: 048
     Dates: start: 20170607, end: 20170613
  38. BELIMUMAB [Suspect]
     Active Substance: BELIMUMAB
     Indication: LUPUS NEPHRITIS
     Route: 065
  39. CYTOXAN [Suspect]
     Active Substance: CYCLOPHOSPHAMIDE
     Indication: PRODUCT USED FOR UNKNOWN INDICATION
     Dosage: IN NS 500 ML IVPB (6 DOSES, LAST 5/2)
     Route: 065
  40. TACROLIMUS. [Concomitant]
     Active Substance: TACROLIMUS
     Route: 048
  41. METHYLPREDNISOLONE. [Concomitant]
     Active Substance: METHYLPREDNISOLONE
  42. SOLU-MEDROL [Suspect]
     Active Substance: METHYLPREDNISOLONE SODIUM SUCCINATE
     Route: 042
     Dates: start: 20170427, end: 20170427
  43. PREDNISONE. [Suspect]
     Active Substance: PREDNISONE
     Route: 048
     Dates: start: 20170628
  44. DAPSONE. [Suspect]
     Active Substance: DAPSONE
     Indication: PRODUCT USED FOR UNKNOWN INDICATION
     Route: 065
  45. DIAZEPAM. [Concomitant]
     Active Substance: DIAZEPAM
     Route: 048
  46. ERGOCALCIFEROL. [Concomitant]
     Active Substance: ERGOCALCIFEROL
     Route: 048
  47. CLONIDINE. [Concomitant]
     Active Substance: CLONIDINE
  48. RITUXIMAB. [Suspect]
     Active Substance: RITUXIMAB
     Dosage: INFUSION START DATE: 12:50?INFUSION END DATE :13:20?INFUSION RATE: 200 MG/HOUR
     Route: 042
     Dates: start: 20170411
  49. RITUXIMAB. [Suspect]
     Active Substance: RITUXIMAB
     Dosage: INFUSION START DATE: 10:39?INFUSION END DATE :11:08?INFUSION RATE: 100 MG/HOUR
     Route: 042
     Dates: start: 20170427
  50. PREDNISONE. [Suspect]
     Active Substance: PREDNISONE
     Route: 048
     Dates: start: 20170325, end: 20170427
  51. PREDNISONE. [Suspect]
     Active Substance: PREDNISONE
     Route: 048
     Dates: start: 20170614, end: 20170620
  52. SUMATRIPTAN. [Concomitant]
     Active Substance: SUMATRIPTAN
     Route: 048
  53. LISINOPRIL. [Concomitant]
     Active Substance: LISINOPRIL
     Route: 048
  54. ACETAMINOPHEN. [Concomitant]
     Active Substance: ACETAMINOPHEN
     Route: 065
     Dates: start: 20170411
  55. MYFORTIC [Concomitant]
     Active Substance: MYCOPHENOLATE SODIUM
  56. FERROUS SULFATE. [Concomitant]
     Active Substance: FERROUS SULFATE
     Route: 048
  57. RITUXIMAB. [Suspect]
     Active Substance: RITUXIMAB
     Dosage: INFUSION START DATE: 12:20?INFUSION END DATE :12:50?INFUSION RATE: 150 MG/HOUR
     Route: 042
     Dates: start: 20170411
  58. RITUXIMAB. [Suspect]
     Active Substance: RITUXIMAB
     Dosage: INFUSION START DATE: 12:10?INFUSION END DATE :12:38?INFUSION RATE: 300 MG/HOUR
     Route: 042
     Dates: start: 20170427
  59. PREDNISONE. [Suspect]
     Active Substance: PREDNISONE
     Route: 048
     Dates: start: 20170503, end: 20170509
  60. VANCOMYCINE [Suspect]
     Active Substance: VANCOMYCIN
     Indication: STOMATITIS
     Dosage: TAKEN FO 2.5 WEEKS
     Route: 048
     Dates: start: 201702, end: 201702
  61. HYDROXYCHLOROQUINE [Concomitant]
     Active Substance: HYDROXYCHLOROQUINE
     Route: 048
  62. OMEPRAZOLE. [Concomitant]
     Active Substance: OMEPRAZOLE
     Route: 048
  63. ACETAMINOPHEN. [Concomitant]
     Active Substance: ACETAMINOPHEN
     Route: 065
     Dates: start: 20170427
  64. CARVEDILOL. [Concomitant]
     Active Substance: CARVEDILOL
     Route: 065

REACTIONS (17)
  - Pneumonia respiratory syncytial viral [Recovered/Resolved]
  - Acute kidney injury [Recovered/Resolved with Sequelae]
  - Hypocalcaemia [Recovered/Resolved]
  - Blood albumin decreased [Not Recovered/Not Resolved]
  - Hypokalaemia [Recovered/Resolved]
  - Haemoglobin decreased [Recovering/Resolving]
  - Lupus nephritis [Not Recovered/Not Resolved]
  - Hypertensive emergency [Recovered/Resolved]
  - Anaemia [Recovered/Resolved]
  - Pancytopenia [Recovered/Resolved]
  - Pulmonary alveolar haemorrhage [Recovered/Resolved]
  - Cellulitis [Recovered/Resolved]
  - Sepsis [Recovered/Resolved]
  - Accelerated hypertension [Recovered/Resolved]
  - Anaemia [Recovered/Resolved]
  - Hypertension [Recovered/Resolved]
  - Leukopenia [Recovered/Resolved]

NARRATIVE: CASE EVENT DATE: 20170411
